FAERS Safety Report 7686025-1 (Version None)
Quarter: 2011Q3

REPORT INFORMATION
  Report Type: 
  Country: None (occurrence: None)
  Receive Date: 20110816
  Receipt Date: 20110814
  Transmission Date: 20111222
  Serious: No
  Sender: FDA-Public Use
  Company Number: US-PFIZER INC-2011186791

PATIENT
  Sex: Female

DRUGS (1)
  1. LYRICA [Suspect]
     Dosage: UNK
     Dates: start: 20110501, end: 20110808

REACTIONS (6)
  - PAIN [None]
  - NAUSEA [None]
  - SWELLING FACE [None]
  - HEADACHE [None]
  - OEDEMA PERIPHERAL [None]
  - INFLUENZA [None]
